FAERS Safety Report 4389283-4 (Version None)
Quarter: 2004Q2

REPORT INFORMATION
  Report Type: 
  Country: None (occurrence: None)
  Receive Date: 20040624
  Receipt Date: 20040621
  Transmission Date: 20050107
  Serious: Yes (Hospitalization)
  Sender: FDA-Public Use
  Company Number: 2004-02731

PATIENT
  Age: 78 Year
  Sex: Male

DRUGS (6)
  1. DIAZEPAM [Suspect]
     Indication: GENERALISED ANXIETY DISORDER
     Dosage: 5 MG, BID X 30 YEARS, ORAL
     Route: 048
  2. PAROXETINE HCL [Concomitant]
  3. LEVOTHYROXINE SODIUM [Concomitant]
  4. RABEPRAZOLE SODIUM [Concomitant]
  5. RANITIDINE [Concomitant]
  6. FINASTERIDE [Concomitant]

REACTIONS (1)
  - DELUSION OF REPLACEMENT [None]
